FAERS Safety Report 6442724-0 (Version None)
Quarter: 2009Q4

REPORT INFORMATION
  Report Type: 
  Country: None (occurrence: None)
  Receive Date: 20091117
  Receipt Date: 20091013
  Transmission Date: 20100525
  Serious: Yes (Other)
  Sender: FDA-Public Use
  Company Number: PHHY2009CN44533

PATIENT
  Sex: Female
  Weight: 70 kg

DRUGS (1)
  1. SANDOSTATIN [Suspect]
     Indication: PANCREATITIS ACUTE
     Dosage: 1.2 MG/DAY
     Dates: start: 20091013

REACTIONS (2)
  - CAESAREAN SECTION [None]
  - DRUG EXPOSURE DURING PREGNANCY [None]
